FAERS Safety Report 18122632 (Version 1)
Quarter: 2020Q3

REPORT INFORMATION
  Report Type: Spontaneous
  Country: JP (occurrence: JP)
  Receive Date: 20200807
  Receipt Date: 20200807
  Transmission Date: 20201103
  Serious: Yes (Death)
  Sender: FDA-Public Use
  Company Number: JP-SGP-000034

PATIENT
  Age: 70 Year

DRUGS (3)
  1. METHYLPREDNISOLONE. [Suspect]
     Active Substance: METHYLPREDNISOLONE
     Indication: PARANEOPLASTIC PEMPHIGUS
     Dosage: STEROID PULSE THERAPY
     Route: 065
  2. METHYLPREDNISOLONE. [Suspect]
     Active Substance: METHYLPREDNISOLONE
     Indication: PARANEOPLASTIC PEMPHIGUS
     Dosage: 20?125 MG/DAY
     Route: 048
  3. IMMUNOGLOBULINS NOS [Suspect]
     Active Substance: IMMUNE GLOBULIN NOS
     Indication: PARANEOPLASTIC PEMPHIGUS
     Route: 042

REACTIONS (7)
  - Therapeutic product effect incomplete [Unknown]
  - Pulmonary infarction [Fatal]
  - Pneumocystis jirovecii infection [Fatal]
  - Respiratory failure [Fatal]
  - Opportunistic infection [Fatal]
  - Disseminated cytomegaloviral infection [Fatal]
  - Interstitial lung disease [Fatal]
